FAERS Safety Report 4850542-X (Version None)
Quarter: 2005Q4

REPORT INFORMATION
  Report Type: 
  Country: None (occurrence: None)
  Receive Date: 20051208
  Receipt Date: 20051125
  Transmission Date: 20060501
  Serious: Yes (Life-Threatening, Hospitalization, Disabling)
  Sender: FDA-Public Use
  Company Number: 2004200129FR

PATIENT
  Age: 45 Year
  Sex: Female
  Weight: 60 kg

DRUGS (3)
  1. SULFASALAZINE [Suspect]
     Indication: RHEUMATOID ARTHRITIS
     Dosage: 1000 MG (2 IN 1 D), ORAL
     Route: 048
     Dates: start: 20031127, end: 20031229
  2. PREDNISONE [Concomitant]
  3. OROCAL (CALCIUM CARBONATE) [Concomitant]

REACTIONS (61)
  - ACTIVITIES OF DAILY LIVING IMPAIRED [None]
  - AMYOTROPHY [None]
  - ANAEMIA [None]
  - ANXIETY [None]
  - AREFLEXIA [None]
  - AUTOIMMUNE HEPATITIS [None]
  - BRAIN OEDEMA [None]
  - COAGULOPATHY [None]
  - COGNITIVE DISORDER [None]
  - COMA [None]
  - CYTOLYTIC HEPATITIS [None]
  - CYTOMEGALOVIRUS INFECTION [None]
  - DISSEMINATED INTRAVASCULAR COAGULATION [None]
  - DISTURBANCE IN ATTENTION [None]
  - DRUG ERUPTION [None]
  - DRUG HYPERSENSITIVITY [None]
  - DYSPHONIA [None]
  - DYSSTASIA [None]
  - ENCEPHALOPATHY [None]
  - FEAR OF DISEASE [None]
  - FLATULENCE [None]
  - GENERAL PHYSICAL HEALTH DETERIORATION [None]
  - HAEMODIALYSIS [None]
  - HEADACHE [None]
  - HEPARIN-INDUCED THROMBOCYTOPENIA [None]
  - HEPATIC FAILURE [None]
  - HEPATIC FIBROSIS [None]
  - HEPATIC NECROSIS [None]
  - HEPATITIS CHOLESTATIC [None]
  - HEPATITIS FULMINANT [None]
  - HEPATITIS TOXIC [None]
  - HEPATOCELLULAR DAMAGE [None]
  - HEPATOMEGALY [None]
  - HYPERACUSIS [None]
  - INTUBATION COMPLICATION [None]
  - LUNG INFECTION [None]
  - MEMORY IMPAIRMENT [None]
  - MONOPLEGIA [None]
  - MULTI-ORGAN FAILURE [None]
  - NAUSEA [None]
  - NEUROMYOPATHY [None]
  - NEUROPATHY [None]
  - OEDEMA PERIPHERAL [None]
  - PERIPHERAL MOTOR NEUROPATHY [None]
  - PERIPHERAL SENSORY NEUROPATHY [None]
  - PERITONEAL EFFUSION [None]
  - PHYSICAL EXAMINATION ABNORMAL [None]
  - PLEURAL EFFUSION [None]
  - POLYNEUROPATHY [None]
  - POST PROCEDURAL COMPLICATION [None]
  - PROTHROMBIN TIME SHORTENED [None]
  - PYELONEPHRITIS [None]
  - PYREXIA [None]
  - SENSATION OF HEAVINESS [None]
  - STAPHYLOCOCCAL INFECTION [None]
  - TACHYCARDIA [None]
  - THERAPY NON-RESPONDER [None]
  - THROMBOCYTOPENIA [None]
  - TOXIC SKIN ERUPTION [None]
  - VIRAL RASH [None]
  - WEIGHT INCREASED [None]
